FAERS Safety Report 19157616 (Version 1)
Quarter: 2021Q2

REPORT INFORMATION
  Report Type: Other
  Country: US (occurrence: US)
  Receive Date: 20210420
  Receipt Date: 20210420
  Transmission Date: 20210717
  Serious: Yes (Life-Threatening, Hospitalization, Other)
  Sender: FDA-Public Use
  Company Number: US-C B FLEET CO INC-202104-US-001331

PATIENT
  Age: 65 Year
  Sex: Male

DRUGS (6)
  1. METOPROLOL. [Concomitant]
     Active Substance: METOPROLOL
  2. RAMIPRIL. [Concomitant]
     Active Substance: RAMIPRIL
  3. METFORMIN [Concomitant]
     Active Substance: METFORMIN HYDROCHLORIDE
  4. AMLODIPINE [Concomitant]
     Active Substance: AMLODIPINE BESYLATE
  5. HEPARIN [Suspect]
     Active Substance: HEPARIN SODIUM
  6. ASPIRIN. [Suspect]
     Active Substance: ASPIRIN
     Indication: ANTICOAGULANT THERAPY
     Dosage: DOSE UNKNOWN
     Route: 048

REACTIONS (5)
  - Carotid artery stenosis [Recovered/Resolved]
  - Laryngeal haematoma [Recovering/Resolving]
  - Confusional state [Recovered/Resolved]
  - Dysphagia [Recovered/Resolved]
  - Dysphonia [Recovering/Resolving]
